FAERS Safety Report 11561478 (Version 1)
Quarter: 2015Q3

REPORT INFORMATION
  Report Type: Spontaneous
  Country: US (occurrence: US)
  Receive Date: 20150916
  Receipt Date: 20150916
  Transmission Date: 20151125
  Serious: No
  Sender: FDA-Public Use
  Company Number: US-ELI_LILLY_AND_COMPANY-US200810007236

PATIENT
  Age: 73 Year
  Sex: Female

DRUGS (6)
  1. FORTEO [Suspect]
     Active Substance: TERIPARATIDE
     Dates: start: 200808
  2. PEPCID [Concomitant]
     Active Substance: FAMOTIDINE
     Indication: EROSIVE OESOPHAGITIS
  3. PAIN RELIEF NOS [Concomitant]
     Active Substance: CAMPHOR (SYNTHETIC)\LEVOMENTHOL\MENTHYL SALICYLATE OR CAMPHOR (SYNTHETIC)\MENTHOL\MENTHYL SALICYLATE OR MENTHOL\MENTHYL SALICYLATE
     Indication: BACK PAIN
  4. FORTEO [Suspect]
     Active Substance: TERIPARATIDE
  5. FORTEO [Suspect]
     Active Substance: TERIPARATIDE
     Dosage: UNK, UNKNOWN
  6. PRILOSEC [Concomitant]
     Active Substance: OMEPRAZOLE MAGNESIUM
     Indication: EROSIVE OESOPHAGITIS

REACTIONS (7)
  - Weight decreased [Unknown]
  - Nausea [Unknown]
  - Headache [Unknown]
  - Abdominal distension [Unknown]
  - Muscle spasms [Unknown]
  - Blood phosphorus increased [Unknown]
  - Eating disorder [Unknown]

NARRATIVE: CASE EVENT DATE: 2008
